FAERS Safety Report 8518099 (Version 2)
Quarter: 2013Q4

REPORT INFORMATION
  Report Type: Spontaneous
  Country: US (occurrence: US)
  Receive Date: 20120417
  Receipt Date: 20131119
  Transmission Date: 20140711
  Serious: No
  Sender: FDA-Public Use
  Company Number: US-ASTRAZENECA-2011SE17756

PATIENT
  Age: 56 Year
  Sex: Male
  Weight: 76.2 kg

DRUGS (7)
  1. NEXIUM [Suspect]
     Indication: GASTROOESOPHAGEAL REFLUX DISEASE
     Route: 048
  2. HYDROCO [Concomitant]
  3. CYCLOBENZAPRINE [Concomitant]
  4. ZANTAC [Concomitant]
  5. LORATAB [Concomitant]
     Indication: BACK DISORDER
  6. TRAMADOL [Concomitant]
     Indication: BACK PAIN
  7. ASPIRIN [Concomitant]
     Indication: CARDIAC DISORDER

REACTIONS (9)
  - Heart rate irregular [Unknown]
  - Dyspepsia [Unknown]
  - Dyspepsia [Unknown]
  - Sleep disorder due to general medical condition, insomnia type [Unknown]
  - Restlessness [Unknown]
  - Therapeutic response unexpected [Unknown]
  - Abdominal pain upper [Unknown]
  - Malaise [Unknown]
  - Drug dose omission [Unknown]
